FAERS Safety Report 19040627 (Version 1)
Quarter: 2021Q1

REPORT INFORMATION
  Report Type: Spontaneous
  Country: FR (occurrence: FR)
  Receive Date: 20210322
  Receipt Date: 20210322
  Transmission Date: 20210420
  Serious: Yes (Death, Hospitalization, Other)
  Sender: FDA-Public Use
  Company Number: FR-PURDUE-USA-2021-0234841

PATIENT
  Age: 37 Year
  Sex: Male

DRUGS (1)
  1. OXYCODONE HYDROCHLORIDE. [Suspect]
     Active Substance: OXYCODONE HYDROCHLORIDE
     Indication: TOXICITY TO VARIOUS AGENTS
     Dosage: UNK
     Route: 065

REACTIONS (10)
  - Toxic leukoencephalopathy [Fatal]
  - Hyperkalaemia [Unknown]
  - Hepatic failure [Recovering/Resolving]
  - Intentional overdose [Fatal]
  - Metabolic acidosis [Unknown]
  - Toxicity to various agents [Fatal]
  - Disseminated intravascular coagulation [Recovering/Resolving]
  - Acute kidney injury [Recovering/Resolving]
  - Hyperlactacidaemia [Unknown]
  - Rhabdomyolysis [Unknown]
